FAERS Safety Report 4297002-5 (Version None)
Quarter: 2004Q1

REPORT INFORMATION
  Report Type: 
  Country: None (occurrence: None)
  Receive Date: 20040217
  Receipt Date: 20040204
  Transmission Date: 20041129
  Serious: Yes (Other)
  Sender: FDA-Public Use
  Company Number: PHEH2004US01672

PATIENT
  Sex: Female

DRUGS (1)
  1. FEMARA [Suspect]

REACTIONS (2)
  - ABDOMINAL PAIN [None]
  - PANCREATITIS CHRONIC [None]
